FAERS Safety Report 5731601-6 (Version None)
Quarter: 2008Q2

REPORT INFORMATION
  Report Type: 
  Country: None (occurrence: None)
  Receive Date: 20080506
  Receipt Date: 20080506
  Transmission Date: 20081010
  Serious: Yes (Hospitalization, Other)
  Sender: FDA-Public Use
  Company Number: None

PATIENT
  Age: 26 Year
  Sex: Female
  Weight: 61.2356 kg

DRUGS (1)
  1. MINOCYCLINE GENERIC [Suspect]
     Indication: ACNE
     Dosage: TWICE DAILY PO
     Route: 048
     Dates: start: 20080415, end: 20080429

REACTIONS (6)
  - ARTHRALGIA [None]
  - ASTHENIA [None]
  - INFLAMMATION [None]
  - NO THERAPEUTIC RESPONSE [None]
  - PAIN IN EXTREMITY [None]
  - RENAL PAIN [None]
